FAERS Safety Report 11641680 (Version 1)
Quarter: 2015Q4

REPORT INFORMATION
  Report Type: Report from Study
  Country: US (occurrence: US)
  Receive Date: 20151019
  Receipt Date: 20151019
  Transmission Date: 20160304
  Serious: Yes (Other)
  Sender: FDA-Public Use
  Company Number: US-JNJFOC-20151013046

PATIENT
  Age: 69 Year
  Sex: Male
  Weight: 44.31 kg

DRUGS (3)
  1. RIVAROXABAN [Suspect]
     Active Substance: RIVAROXABAN
     Indication: HIP ARTHROPLASTY
     Route: 048
     Dates: start: 20130921
  2. RIVAROXABAN [Suspect]
     Active Substance: RIVAROXABAN
     Indication: THROMBOSIS PROPHYLAXIS
     Route: 048
     Dates: start: 20130921
  3. FONDAPARINUX [Concomitant]
     Active Substance: FONDAPARINUX
     Indication: HIP ARTHROPLASTY
     Route: 065
     Dates: start: 20130917

REACTIONS (2)
  - Pulmonary embolism [Unknown]
  - Drug ineffective [Unknown]

NARRATIVE: CASE EVENT DATE: 20131031
